FAERS Safety Report 8482386-4 (Version None)
Quarter: 2012Q3

REPORT INFORMATION
  Report Type: 
  Country: None (occurrence: None)
  Receive Date: 20120702
  Receipt Date: 20120618
  Transmission Date: 20120928
  Serious: Yes (Other)
  Sender: FDA-Public Use
  Company Number: US-CTI_01467_2012

PATIENT
  Sex: Male
  Weight: 123 kg

DRUGS (19)
  1. SYMBICORT [Concomitant]
     Indication: ASTHMA
     Dosage: 160/4.5 ORAL INHAL 2 PUFFS 12 HRS
  2. NEXIUM [Concomitant]
     Indication: GASTROOESOPHAGEAL REFLUX DISEASE
     Dosage: [EVENING]
  3. MULTI-VITAMIN [Concomitant]
     Indication: ROUTINE HEALTH MAINTENANCE
  4. COQ10 [Concomitant]
     Indication: ROUTINE HEALTH MAINTENANCE
     Dosage: DF
  5. IPRATROPIUM BROMIDE [Concomitant]
     Indication: ASTHMA
     Dosage: 2 PUFFS EACH NOSTRIL 3 TIMES DAILY
  6. CALCIUM [Concomitant]
     Indication: ROUTINE HEALTH MAINTENANCE
  7. VITAMIN D [Concomitant]
     Indication: ROUTINE HEALTH MAINTENANCE
     Dosage: 2000 UNIT
  8. ZOCOR [Concomitant]
     Indication: BLOOD CHOLESTEROL
     Dosage: [EVENING]
  9. COMBIVENT [Concomitant]
     Indication: ASTHMA
     Dosage: 18 MCG 2 PUFFS 4 TIMES DAILY AS NEEDED
  10. ZYFLO CR [Suspect]
     Indication: ASTHMA
     Route: 048
     Dates: start: 20120209
  11. FUROSEMIDE [Concomitant]
     Indication: FLUID RETENTION
  12. NAPROXEN [Concomitant]
     Indication: ARTHRITIS
  13. KLOR-CON [Concomitant]
     Indication: BLOOD POTASSIUM
     Dosage: [MORNING]
  14. HCTZ/MICROZIDE [Concomitant]
     Indication: BLOOD PRESSURE
     Dosage: [MORNING]
  15. FISH OIL [Concomitant]
     Indication: ROUTINE HEALTH MAINTENANCE
     Dosage: OMEGA 3 100MG 3 SOFTGELS TWICE DAILY
  16. MAGNESIUM SULFATE [Concomitant]
     Indication: ROUTINE HEALTH MAINTENANCE
  17. ZESTRIL [Concomitant]
     Indication: BLOOD PRESSURE
     Dosage: [MORNING]
  18. MONTELUKAST/SINGULAR [Concomitant]
     Indication: ASTHMA
     Dosage: [EVENING]
  19. GABAPENTIN [Concomitant]
     Indication: ARTHRITIS

REACTIONS (2)
  - ASPARTATE AMINOTRANSFERASE INCREASED [None]
  - ALANINE AMINOTRANSFERASE INCREASED [None]
